FAERS Safety Report 6918700-8 (Version None)
Quarter: 2010Q3

REPORT INFORMATION
  Report Type: 
  Country: None (occurrence: None)
  Receive Date: 20100811
  Receipt Date: 20100805
  Transmission Date: 20110219
  Serious: Yes (Death, Other)
  Sender: FDA-Public Use
  Company Number: PHHY2010US50493

PATIENT
  Sex: Male

DRUGS (7)
  1. EXJADE [Suspect]
     Indication: BLOOD TEST ABNORMAL
     Dosage: 1000 MG TO 1500 MG DAILY
     Route: 048
  2. WARFARIN SODIUM [Concomitant]
     Dosage: UNK
  3. DESFERAL [Concomitant]
     Dosage: 2 G/UNIT OF BLOOD
  4. LUPRON [Concomitant]
     Dosage: UNK
  5. RED BLOOD CELLS [Concomitant]
     Dosage: UNK
     Dates: start: 20100122
  6. RED BLOOD CELLS [Concomitant]
     Dosage: UNK
     Dates: start: 20100415
  7. RED BLOOD CELLS [Concomitant]
     Dosage: 2 UNITS
     Dates: start: 20100604

REACTIONS (4)
  - BLOOD CREATININE INCREASED [None]
  - DEATH [None]
  - HYPERTENSION [None]
  - RENAL FAILURE [None]
